FAERS Safety Report 6443460-7 (Version None)
Quarter: 2009Q4

REPORT INFORMATION
  Report Type: 
  Country: None (occurrence: None)
  Receive Date: 20091117
  Receipt Date: 20091107
  Transmission Date: 20100525
  Serious: Yes (Other)
  Sender: FDA-Public Use
  Company Number: US-PFIZER INC-2009227457

PATIENT
  Sex: Female

DRUGS (2)
  1. GENOTROPIN [Suspect]
     Indication: PRECOCIOUS PUBERTY
     Dosage: 1.8 MG, 1X/DAY
     Dates: start: 20090101
  2. LUPRON [Concomitant]
     Dosage: UNK

REACTIONS (4)
  - APPETITE DISORDER [None]
  - IRRITABILITY [None]
  - MOOD ALTERED [None]
  - WEIGHT INCREASED [None]
